FAERS Safety Report 24246715 (Version 1)
Quarter: 2024Q3

REPORT INFORMATION
  Report Type: Report from Study
  Country: ZA (occurrence: ZA)
  Receive Date: 20240825
  Receipt Date: 20240825
  Transmission Date: 20241017
  Serious: Yes (Other)
  Sender: ABBVIE
  Company Number: ZA-ABBOTT-2024A-1386190

PATIENT
  Sex: Male

DRUGS (28)
  1. CREON [Suspect]
     Active Substance: PANCRELIPASE AMYLASE\PANCRELIPASE LIPASE\PANCRELIPASE PROTEASE
     Indication: Pancreatic failure
     Dosage: CREON 10000: 150 MG TAKE TWO CAPSULES THREE TIMES DAILY
     Route: 048
  2. CREON [Suspect]
     Active Substance: PANCRELIPASE AMYLASE\PANCRELIPASE LIPASE\PANCRELIPASE PROTEASE
     Indication: Pancreatic failure
     Dosage: CREON 25000: 300 MG TAKE ONE CAPSULE THREE TIMES DAILY
     Route: 048
  3. 3M CAVILON ANTIFUNGAL [Concomitant]
     Active Substance: MICONAZOLE NITRATE
     Indication: Product used for unknown indication
     Dosage: AS DIRECTED, DURABLE BARRIER
     Route: 061
  4. VALSARTAN [Concomitant]
     Active Substance: VALSARTAN
     Indication: Hypertension
     Dosage: 80 MG TAKE ONE TABLET IN THE MORNING
     Route: 048
  5. LOPERAMIDE [Concomitant]
     Active Substance: LOPERAMIDE
     Indication: Product used for unknown indication
     Dosage: 2 MG TAKE TWO TABLETS TAKE AS A SINGLE DOSE TO START THEN TAKE ONE TABLET EVERY AFTER LOOSE STOOL
     Route: 048
  6. Cifran [Concomitant]
     Indication: Product used for unknown indication
     Dosage: 500 MG TAKE ONE TABLET TWICE DAILY
     Route: 048
  7. MAGNESIUM CHLORIDE [Concomitant]
     Active Substance: MAGNESIUM CHLORIDE
     Indication: Product used for unknown indication
     Dosage: TAKE ONE CAPSULE DAILY
     Route: 048
  8. FLUCONAZOLE [Concomitant]
     Active Substance: FLUCONAZOLE
     Indication: Product used for unknown indication
     Dosage: 200 MG TAKE ONE CAPSULE DAILY
     Route: 048
  9. LACTOBACILLUS REUTERI [Concomitant]
     Active Substance: LACTOBACILLUS REUTERI
     Indication: Product used for unknown indication
     Dosage: CHEW ONE TABLET TWICE DAILY
     Route: 048
  10. Tussmuco [Concomitant]
     Indication: Product used for unknown indication
     Dosage: 200 MG DISSOLVED IN WATER ONE TO TWO THREE TIMES DAILY
     Route: 048
  11. BETAPHLEM [Concomitant]
     Indication: Product used for unknown indication
     Dosage: 250 MG TAKE TWO MEASUREFUL (10ML) EVERY EIGHT HOURS
     Route: 048
  12. PECTROLYTE [Concomitant]
     Indication: Product used for unknown indication
     Dosage: 20MLS FOUR TIMES DAILY
     Route: 048
  13. LESSMUSEC [Concomitant]
     Indication: Product used for unknown indication
     Dosage: 375 MG TAKE TWO CAPSULES THREE TIMES DAILY
     Route: 048
  14. ENTIRO [Concomitant]
     Indication: Product used for unknown indication
     Dosage: TAKE ONE TABLET TWICE DAILY
     Route: 048
  15. GELATIN [Concomitant]
     Active Substance: GELATIN
     Indication: Product used for unknown indication
     Dosage: 500 MG TAKE 2 CAPSULES 6 HOURLY
     Route: 048
  16. FLUTICASONE [Concomitant]
     Active Substance: FLUTICASONE
     Indication: Hypersensitivity
     Dosage: 50 MCG AS DIRECTED
     Route: 045
  17. CLARITHROMYCIN [Concomitant]
     Active Substance: CLARITHROMYCIN
     Indication: Product used for unknown indication
     Dosage: 500 MG TAKE ONE TABLET TWICE DAILY
     Route: 048
  18. Sandoz co amoxyclav [Concomitant]
     Indication: Product used for unknown indication
     Dosage: 1000 MG DISSOLVED IN WATER DRINK ONE TABLET TWICE DAILY
     Route: 048
  19. Pantocid [Concomitant]
     Indication: Ulcer
     Dosage: 40 MG TAKE ONE TABLET TWICE DAILY
     Route: 048
  20. Zoxil [Concomitant]
     Indication: Product used for unknown indication
     Dosage: 500 MG TAKE TWO CAPSULES THREE TIMES DAILY
     Route: 048
  21. PURGOLENE [Concomitant]
     Indication: Product used for unknown indication
     Dosage: DRINK CONTENTS OF TWO SACHETS DAILY
     Route: 048
  22. Spiractin [Concomitant]
     Indication: Hypertension
     Dosage: 25 MG TAKE ONE TABLET IN THE MORNING
     Route: 048
  23. Lipogen [Concomitant]
     Indication: Blood cholesterol
     Dosage: 20 MG TAKE ONE TABLET AT NIGHT
     Route: 048
  24. Laxette [Concomitant]
     Indication: Product used for unknown indication
     Dosage: 3.3 G AS DIRECTED 20ML DAILY
     Route: 048
  25. ECOTRIN [Concomitant]
     Active Substance: ASPIRIN
     Indication: Blood disorder prophylaxis
     Dosage: 81 MG TAKE ONE TABLET IN THE MORNING
     Route: 048
  26. Ranclav [Concomitant]
     Indication: Product used for unknown indication
     Dosage: 1000 MG TAKE ONE TABLET THREE TIMES DAILY
     Route: 048
  27. Mucosolv [Concomitant]
     Indication: Product used for unknown indication
     Dosage: 375 MG TAKE TAKE ONE TO TWO CAPSULES THREE TIMES DAILY
     Route: 048
  28. PROBIFLORA ADULT RESTORE [Concomitant]
     Indication: Product used for unknown indication
     Dosage: AS DIRECTED
     Route: 048

REACTIONS (2)
  - Motor neurone disease [Unknown]
  - Aphasia [Unknown]
